FAERS Safety Report 24098036 (Version 1)
Quarter: 2024Q3

REPORT INFORMATION
  Report Type: Spontaneous
  Country: US (occurrence: None)
  Receive Date: 20240716
  Receipt Date: 20240716
  Transmission Date: 20241017
  Serious: Yes (Hospitalization)
  Sender: Public
  Company Number: None

PATIENT
  Age: 79 Year
  Sex: Female

DRUGS (1)
  1. REPATHA [Suspect]
     Active Substance: EVOLOCUMAB
     Indication: Arteriosclerosis coronary artery

REACTIONS (5)
  - Urinary tract infection [None]
  - Asthenia [None]
  - Fall [None]
  - Hyponatraemia [None]
  - Skin laceration [None]

NARRATIVE: CASE EVENT DATE: 20240715
